FAERS Safety Report 6539564-0 (Version None)
Quarter: 2010Q1

REPORT INFORMATION
  Report Type: 
  Country: None (occurrence: None)
  Receive Date: 20100115
  Receipt Date: 20100111
  Transmission Date: 20100710
  Serious: Yes (Hospitalization)
  Sender: FDA-Public Use
  Company Number: B0625664A

PATIENT
  Sex: Female

DRUGS (3)
  1. AUGMENTIN '125' [Suspect]
     Indication: UPPER RESPIRATORY TRACT INFECTION
     Dosage: 1G PER DAY
     Route: 048
     Dates: start: 20090410, end: 20090410
  2. SELOKEN [Concomitant]
     Route: 048
  3. ASPIRIN [Concomitant]
     Route: 048

REACTIONS (3)
  - DYSPNOEA [None]
  - ERYTHEMA [None]
  - THROAT TIGHTNESS [None]
